FAERS Safety Report 9481108 (Version 1)
Quarter: 2013Q3

REPORT INFORMATION
  Report Type: Spontaneous
  Country: US (occurrence: US)
  Receive Date: 20130828
  Receipt Date: 20130828
  Transmission Date: 20140515
  Serious: Yes (Other)
  Sender: FDA-Public Use
  Company Number: US-AMGEN-KDL154088

PATIENT
  Age: 47 Year
  Sex: Female

DRUGS (3)
  1. ENBREL [Suspect]
     Indication: PSORIATIC ARTHROPATHY
     Dosage: 50 MG, 2 TIMES/WK
     Route: 058
     Dates: start: 20050715
  2. ENBREL [Suspect]
     Indication: PSORIASIS
  3. CYCLOSPORINE [Concomitant]
     Dosage: 50 MG, QD
     Dates: start: 20041130

REACTIONS (2)
  - Hepatomegaly [Unknown]
  - Dyspnoea [Unknown]
